FAERS Safety Report 24993047 (Version 1)
Quarter: 2025Q1

REPORT INFORMATION
  Report Type: Spontaneous
  Country: AU (occurrence: AU)
  Receive Date: 20250221
  Receipt Date: 20250221
  Transmission Date: 20250408
  Serious: Yes (Other)
  Sender: NOVO NORDISK
  Company Number: AU-NOVOPROD-1369895

PATIENT
  Sex: Female

DRUGS (1)
  1. WEGOVY [Suspect]
     Active Substance: SEMAGLUTIDE
     Indication: Weight control

REACTIONS (2)
  - Pancreatic enzymes increased [Unknown]
  - Pancreatic carcinoma [Unknown]
